FAERS Safety Report 5697724-5 (Version None)
Quarter: 2008Q2

REPORT INFORMATION
  Report Type: 
  Country: None (occurrence: None)
  Receive Date: 20080408
  Receipt Date: 20080331
  Transmission Date: 20081010
  Serious: Yes (Hospitalization, Other)
  Sender: FDA-Public Use
  Company Number: B0514425A

PATIENT
  Age: 57 Year
  Sex: Female

DRUGS (1)
  1. ALKERAN [Suspect]
     Route: 042

REACTIONS (5)
  - CONDITION AGGRAVATED [None]
  - FACE OEDEMA [None]
  - OEDEMA PERIPHERAL [None]
  - PULMONARY OEDEMA [None]
  - RENAL FAILURE [None]
